FAERS Safety Report 7000394-7 (Version None)
Quarter: 2010Q3

REPORT INFORMATION
  Report Type: 
  Country: None (occurrence: None)
  Receive Date: 20100920
  Receipt Date: 20100513
  Transmission Date: 20110219
  Serious: No
  Sender: FDA-Public Use
  Company Number: US-ASTRAZENECA-2010SE22030

PATIENT
  Age: 16 Year
  Sex: Female

DRUGS (4)
  1. SEROQUEL [Suspect]
     Route: 048
     Dates: start: 20100415
  2. ANTIVERT [Concomitant]
  3. PROZAC [Concomitant]
  4. MOTRIN [Concomitant]

REACTIONS (1)
  - BREAST TENDERNESS [None]
